FAERS Safety Report 8921917 (Version 2)
Quarter: 2012Q4

REPORT INFORMATION
  Report Type: 
  Country: BR (occurrence: BR)
  Receive Date: 20121122
  Receipt Date: 20121226
  Transmission Date: 20130627
  Serious: Yes (Other)
  Sender: FDA-Public Use
  Company Number: PHHY2012BR105532

PATIENT
  Age: 51 Year
  Sex: Female

DRUGS (2)
  1. ESTALIS [Suspect]
     Indication: HORMONE REPLACEMENT THERAPY
     Dosage: 2 DF, QW2
     Route: 062
  2. ESTALIS [Suspect]
     Dosage: 2 DF, QW2
     Route: 062

REACTIONS (6)
  - Drug dependence [Unknown]
  - Malaise [Recovered/Resolved]
  - Anaemia [Recovered/Resolved]
  - Pain in extremity [Recovered/Resolved]
  - Asthenia [Recovered/Resolved]
  - Product adhesion issue [Unknown]
